FAERS Safety Report 17401950 (Version 2)
Quarter: 2020Q1

REPORT INFORMATION
  Report Type: Report from Study
  Country: DE (occurrence: DE)
  Receive Date: 20200211
  Receipt Date: 20200220
  Transmission Date: 20200409
  Serious: Yes (Hospitalization)
  Sender: FDA-Public Use
  Company Number: DE-ROCHE-2545059

PATIENT
  Age: 36 Year
  Sex: Male
  Weight: 71 kg

DRUGS (5)
  1. ATEZOLIZUMAB. [Suspect]
     Active Substance: ATEZOLIZUMAB
     Indication: GASTRIC CANCER
     Dosage: ON 04/FEB/2020, HE RECEIVED THE LAST DOSE (840 MG) OF ATEZOLIZUMAB.
     Route: 042
  2. FLUOROURACIL. [Suspect]
     Active Substance: FLUOROURACIL
     Indication: GASTRIC CANCER
     Dosage: ON 04/FEB/2020, HE RECEIVED THE LAST DOSE (4784 MG) OF FLUOROURACIL.
     Route: 042
  3. DOCETAXEL. [Suspect]
     Active Substance: DOCETAXEL
     Indication: GASTRIC CANCER
     Dosage: ON 04/FEB/2020, HE RECEIVED THE LAST DOSE (92 MG) OF DOCETAXEL
     Route: 042
  4. LEUCOVORIN [FOLINIC ACID] [Suspect]
     Active Substance: LEUCOVORIN
     Indication: GASTRIC CANCER
     Dosage: ON 04/FEB/2020, HE RECEIVED THE LAST DOSE (368 MG) OF LEUCOVORIN.
     Route: 042
  5. OXALIPLATIN. [Suspect]
     Active Substance: OXALIPLATIN
     Indication: GASTRIC CANCER
     Dosage: ON 04/FEB/2020, HE RECEIVED THE LAST DOSE (156.4 MG) OF OXALIPLATIN.
     Route: 042

REACTIONS (1)
  - Febrile infection [Recovered/Resolved]

NARRATIVE: CASE EVENT DATE: 20200204
